FAERS Safety Report 20989504 (Version 1)
Quarter: 2022Q2

REPORT INFORMATION
  Report Type: Spontaneous
  Country: JP (occurrence: JP)
  Receive Date: 20220621
  Receipt Date: 20220621
  Transmission Date: 20220721
  Serious: Yes (Other)
  Sender: FDA-Public Use
  Company Number: JP-TAKEDA-2022TJP058156

PATIENT
  Age: 9 Decade
  Sex: Female

DRUGS (1)
  1. ADCETRIS [Suspect]
     Active Substance: BRENTUXIMAB VEDOTIN
     Indication: Adult T-cell lymphoma/leukaemia
     Dosage: 1.8 MILLIGRAM/KILOGRAM, Q3WEEKS
     Route: 041
     Dates: start: 20220214

REACTIONS (2)
  - Adult T-cell lymphoma/leukaemia [Unknown]
  - Disease progression [Unknown]

NARRATIVE: CASE EVENT DATE: 20220404
